FAERS Safety Report 18754503 (Version 5)
Quarter: 2021Q2

REPORT INFORMATION
  Report Type: Spontaneous
  Country: CA (occurrence: CA)
  Receive Date: 20210119
  Receipt Date: 20210427
  Transmission Date: 20210717
  Serious: Yes (Hospitalization, Other)
  Sender: FDA-Public Use
  Company Number: CA-CELLTRION INC.-2019CA023327

PATIENT

DRUGS (13)
  1. INFLECTRA [Suspect]
     Active Substance: INFLIXIMAB-DYYB
     Dosage: 7.5 MG/KG EVERY 8 WEEKS
     Route: 042
     Dates: start: 20200220, end: 20200220
  2. INFLECTRA [Suspect]
     Active Substance: INFLIXIMAB-DYYB
     Indication: CROHN^S DISEASE
     Dosage: 5 MG/KG Q (EVERY) 0,2,6 WEEKS , THEN EVERY 8 WEEKS
     Route: 042
     Dates: start: 20190717, end: 20190717
  3. INFLECTRA [Suspect]
     Active Substance: INFLIXIMAB-DYYB
     Dosage: 5 MG/KG Q (EVERY) 0,2,6 WEEKS , THEN EVERY 8 WEEKS
     Route: 042
     Dates: start: 20191220, end: 20191220
  4. INFLECTRA [Suspect]
     Active Substance: INFLIXIMAB-DYYB
     Dosage: 7.5 MG/KG EVERY 8 WEEKS
     Route: 042
     Dates: start: 20200611, end: 20200611
  5. INFLECTRA [Suspect]
     Active Substance: INFLIXIMAB-DYYB
     Dosage: 10 MG/KG EVERY 6 WEEKS
     Route: 042
     Dates: start: 20201126
  6. MEZAVANT [Concomitant]
     Active Substance: MESALAMINE
     Dosage: 1 DF
     Route: 065
  7. PREDNISONE. [Concomitant]
     Active Substance: PREDNISONE
     Dosage: 1 DF
     Route: 065
     Dates: start: 2018
  8. INFLECTRA [Suspect]
     Active Substance: INFLIXIMAB-DYYB
     Dosage: 10 MG/KG EVERY 6 WEEKS
     Route: 042
     Dates: start: 20200903, end: 20200903
  9. INFLECTRA [Suspect]
     Active Substance: INFLIXIMAB-DYYB
     Dosage: 10 MG/KG EVERY 6 WEEKS
     Route: 042
     Dates: start: 20200722, end: 20200722
  10. INFLECTRA [Suspect]
     Active Substance: INFLIXIMAB-DYYB
     Dosage: 7.5 MG/KG EVERY 8 WEEKS
     Route: 042
     Dates: start: 20200417, end: 20200417
  11. INFLECTRA [Suspect]
     Active Substance: INFLIXIMAB-DYYB
     Dosage: 10 MG/KG EVERY 6 WEEKS
     Route: 042
     Dates: start: 20201013
  12. INFLECTRA [Suspect]
     Active Substance: INFLIXIMAB-DYYB
     Dosage: 5 MG/KG Q (EVERY) 0,2,6 WEEKS , THEN EVERY 8 WEEKS
     Route: 042
     Dates: start: 20191024, end: 20191024
  13. IMURAN [Concomitant]
     Active Substance: AZATHIOPRINE
     Dosage: 1 DF
     Route: 065

REACTIONS (14)
  - Sarcoidosis [Unknown]
  - Blood pressure increased [Unknown]
  - Limb injury [Not Recovered/Not Resolved]
  - Drug level below therapeutic [Unknown]
  - Intentional product use issue [Unknown]
  - Myalgia [Unknown]
  - Nasopharyngitis [Unknown]
  - Pyrexia [Unknown]
  - Dyspnoea [Unknown]
  - C-reactive protein increased [Not Recovered/Not Resolved]
  - Pulmonary congestion [Unknown]
  - Condition aggravated [Unknown]
  - Off label use [Unknown]
  - Off label use [Unknown]

NARRATIVE: CASE EVENT DATE: 20190717
